FAERS Safety Report 4552938-2 (Version None)
Quarter: 2005Q1

REPORT INFORMATION
  Report Type: 
  Country: None (occurrence: None)
  Receive Date: 20050113
  Receipt Date: 20041227
  Transmission Date: 20050727
  Serious: Yes (Hospitalization)
  Sender: FDA-Public Use
  Company Number: US014354

PATIENT
  Age: 28 Year
  Sex: Male

DRUGS (5)
  1. GABITRIL [Suspect]
     Indication: BIPOLAR DISORDER
     Dates: start: 20040922
  2. GABITRIL [Suspect]
     Indication: BIPOLAR DISORDER
     Dosage: 16 MG QD ORAL
     Route: 048
     Dates: start: 20041109, end: 20041101
  3. ZYPREXA [Concomitant]
  4. VALPROIC ACID [Concomitant]
  5. LEXAPRO [Concomitant]

REACTIONS (7)
  - AGITATION [None]
  - COMMUNICATION DISORDER [None]
  - CONVULSION [None]
  - DISORIENTATION [None]
  - DYSTONIA [None]
  - INTENTIONAL SELF-INJURY [None]
  - PARTIAL SEIZURES [None]
